FAERS Safety Report 19744255 (Version 1)
Quarter: 2021Q3

REPORT INFORMATION
  Report Type: Other
  Country: RU (occurrence: RU)
  Receive Date: 20210825
  Receipt Date: 20210825
  Transmission Date: 20211014
  Serious: Yes (Other)
  Sender: FDA-Public Use
  Company Number: RU-ROCHE-2887710

PATIENT
  Age: 52 Year
  Sex: Female

DRUGS (4)
  1. SATRALIZUMAB. [Suspect]
     Active Substance: SATRALIZUMAB
     Dosage: FOURTH INJECTION
     Route: 065
     Dates: start: 20210719
  2. SATRALIZUMAB. [Suspect]
     Active Substance: SATRALIZUMAB
     Indication: NEUROMYELITIS OPTICA SPECTRUM DISORDER
     Dosage: FIRST INJECTION
     Route: 058
     Dates: start: 20210524
  3. SATRALIZUMAB. [Suspect]
     Active Substance: SATRALIZUMAB
     Dosage: SECOND INJECTION
     Route: 065
     Dates: start: 20210607
  4. SATRALIZUMAB. [Suspect]
     Active Substance: SATRALIZUMAB
     Dosage: THIRD INJECTION
     Route: 065
     Dates: start: 20210621

REACTIONS (2)
  - Neutropenia [Unknown]
  - Leukopenia [Not Recovered/Not Resolved]

NARRATIVE: CASE EVENT DATE: 20210616
